FAERS Safety Report 7069672-X (Version None)
Quarter: 2010Q4

REPORT INFORMATION
  Report Type: 
  Country: None (occurrence: None)
  Receive Date: 20101028
  Receipt Date: 20100507
  Transmission Date: 20110411
  Serious: No
  Sender: FDA-Public Use
  Company Number: US-WYE-H15158510

PATIENT
  Sex: Female

DRUGS (2)
  1. CORDARONE [Suspect]
     Route: 048
  2. EFFEXOR XR [Suspect]
     Route: 048

REACTIONS (4)
  - DIZZINESS [None]
  - ERYTHEMA [None]
  - HYPERHIDROSIS [None]
  - VOMITING [None]
